FAERS Safety Report 10189875 (Version 1)
Quarter: 2014Q2

REPORT INFORMATION
  Report Type: Spontaneous
  Country: US (occurrence: US)
  Receive Date: 20140522
  Receipt Date: 20140522
  Transmission Date: 20141212
  Serious: Yes (Hospitalization, Other)
  Sender: FDA-Public Use
  Company Number: US-ASTRAZENECA-2014SE34402

PATIENT
  Age: 74 Year
  Sex: Female
  Weight: 53.5 kg

DRUGS (11)
  1. ANASTROZOLE [Suspect]
     Indication: PROPHYLAXIS
     Route: 048
     Dates: start: 201304, end: 201401
  2. ANASTROZOLE [Suspect]
     Indication: PROPHYLAXIS
     Route: 048
     Dates: start: 201402
  3. ANASTROZOLE [Suspect]
     Indication: PROPHYLAXIS
     Route: 048
     Dates: end: 201405
  4. ZESTRIL [Suspect]
     Indication: BLOOD PRESSURE ABNORMAL
     Route: 048
     Dates: start: 2014
  5. ZESTRIL [Suspect]
     Indication: BLOOD PRESSURE ABNORMAL
     Route: 065
     Dates: start: 2014
  6. CRESTOR [Suspect]
     Indication: BLOOD CHOLESTEROL INCREASED
     Route: 048
     Dates: start: 2013, end: 201401
  7. CRESTOR [Suspect]
     Indication: BLOOD CHOLESTEROL INCREASED
     Route: 048
     Dates: start: 201402
  8. CRESTOR [Suspect]
     Indication: BLOOD CHOLESTEROL INCREASED
     Route: 048
     Dates: start: 20140510
  9. BLOOD PRESSURE MEDICATION [Suspect]
     Indication: BLOOD PRESSURE ABNORMAL
     Route: 065
  10. HYDRALAZINE [Concomitant]
     Indication: BLOOD PRESSURE ABNORMAL
     Route: 048
     Dates: start: 2014
  11. TYLENOL [Concomitant]
     Dates: start: 20140511

REACTIONS (17)
  - Gait disturbance [Unknown]
  - Haemorrhagic stroke [Recovered/Resolved]
  - Hypertension [Recovered/Resolved]
  - Weight decreased [Unknown]
  - Musculoskeletal stiffness [Not Recovered/Not Resolved]
  - Confusional state [Unknown]
  - Disorientation [Unknown]
  - Pain in extremity [Not Recovered/Not Resolved]
  - Yellow skin [Not Recovered/Not Resolved]
  - Dizziness [Not Recovered/Not Resolved]
  - Hot flush [Not Recovered/Not Resolved]
  - Drug hypersensitivity [Unknown]
  - Rosacea [Unknown]
  - Drug ineffective [Unknown]
  - Intentional product misuse [Unknown]
  - Drug dose omission [Unknown]
  - Gait disturbance [None]
